FAERS Safety Report 15762857 (Version 1)
Quarter: 2018Q4

REPORT INFORMATION
  Report Type: Spontaneous
  Country: US (occurrence: US)
  Receive Date: 20181226
  Receipt Date: 20181226
  Transmission Date: 20190205
  Serious: Yes (Hospitalization, Other)
  Sender: FDA-Public Use
  Company Number: US-B.I. PHARMACEUTICALS,INC./RIDGEFIELD-2018-BI-061086

PATIENT
  Age: 52 Year
  Sex: Female

DRUGS (2)
  1. SPIRIVA RESPIMAT [Suspect]
     Active Substance: TIOTROPIUM BROMIDE
     Indication: CHRONIC OBSTRUCTIVE PULMONARY DISEASE
     Dosage: ONCE DAILY, TWO INHALATIONS;STRENGTH: 2.5 MCG; FOR: INHALATION SPRAY ADM YESACTION DOSE NOT CHANGED
     Route: 048
     Dates: start: 201802
  2. SPIRIVA [Suspect]
     Active Substance: TIOTROPIUM BROMIDE MONOHYDRATE
     Indication: CHRONIC OBSTRUCTIVE PULMONARY DISEASE
     Dosage: ONE CAPSULE DAILY;  STRENGTH: 18 MCG; FORMULATION: CAPSULE ADMINISTRATIOYESACTION: DRUG WITHDRAWN
     Route: 055
     Dates: start: 2015, end: 2018

REACTIONS (9)
  - Lower respiratory tract infection [Not Recovered/Not Resolved]
  - Pseudomonas infection [Not Recovered/Not Resolved]
  - Mastoiditis [Not Recovered/Not Resolved]
  - Rash [Not Recovered/Not Resolved]
  - Sepsis [Unknown]
  - Cataract [Not Recovered/Not Resolved]
  - Ear infection bacterial [Not Recovered/Not Resolved]
  - Cough [Not Recovered/Not Resolved]
  - Bacterial infection [Not Recovered/Not Resolved]

NARRATIVE: CASE EVENT DATE: 201807
